FAERS Safety Report 12707009 (Version 2)
Quarter: 2016Q3

REPORT INFORMATION
  Report Type: Report from Study
  Country: MX (occurrence: MX)
  Receive Date: 20160901
  Receipt Date: 20160914
  Transmission Date: 20161109
  Serious: Yes (Other)
  Sender: FDA-Public Use
  Company Number: PHHY2016MX118967

PATIENT
  Sex: Female
  Weight: 62 kg

DRUGS (3)
  1. ASPIRIN PROTECT [Concomitant]
     Active Substance: ASPIRIN
     Indication: PROPHYLAXIS
     Dosage: 1 DF, QD
     Route: 048
     Dates: start: 2012
  2. CO-DIOVAN [Suspect]
     Active Substance: HYDROCHLOROTHIAZIDE\VALSARTAN
     Dosage: 1 DF, QD (HYDROCHLOROTHIAZIDE 25 MG, VALSARTAN 160 MG)
     Route: 048
     Dates: start: 20160901
  3. CO-DIOVAN [Suspect]
     Active Substance: HYDROCHLOROTHIAZIDE\VALSARTAN
     Indication: HYPERTENSION
     Dosage: 1 DF, QD (HYDROCHLOROTHIAZIDE 12.5 MG, VALSARTAN 160 MG)
     Route: 048
     Dates: end: 201606

REACTIONS (5)
  - Cholelithiasis [Recovered/Resolved]
  - Fluid retention [Recovered/Resolved]
  - Pancreatolithiasis [Recovered/Resolved]
  - Gallbladder pain [Recovered/Resolved]
  - Blood pressure increased [Recovered/Resolved]

NARRATIVE: CASE EVENT DATE: 2009
